FAERS Safety Report 26140201 (Version 1)
Quarter: 2025Q4

REPORT INFORMATION
  Report Type: Spontaneous
  Country: EU (occurrence: EU)
  Receive Date: 20251210
  Receipt Date: 20251210
  Transmission Date: 20260117
  Serious: Yes (Hospitalization, Other)
  Sender: SANOFI AVENTIS
  Company Number: None

PATIENT
  Age: 22 Day
  Sex: Female

DRUGS (1)
  1. BEYFORTUS [Suspect]
     Active Substance: NIRSEVIMAB-ALIP
     Dosage: UNK (DOSE 1)
     Route: 030
     Dates: start: 20251020, end: 20251020

REACTIONS (2)
  - Bronchiolitis [Recovered/Resolved]
  - Vaccination failure [Recovered/Resolved]

NARRATIVE: CASE EVENT DATE: 20251110
